FAERS Safety Report 5916047-X (Version None)
Quarter: 2008Q4

REPORT INFORMATION
  Report Type: 
  Country: None (occurrence: None)
  Receive Date: 20081013
  Receipt Date: 20081009
  Transmission Date: 20090506
  Serious: Yes (Death)
  Sender: FDA-Public Use
  Company Number: US-WYE-H06099408

PATIENT
  Age: 77 Year
  Sex: Male

DRUGS (2)
  1. TORISEL [Suspect]
     Indication: RENAL CELL CARCINOMA
     Dosage: 25 MG OVER 30 MINUTES ON DAYS 1,8,15 AND 22
     Route: 042
     Dates: start: 20080813, end: 20080911
  2. SORAFENIB [Concomitant]
     Indication: RENAL CELL CARCINOMA
     Dosage: 200 MG OR PLACEBO TWICE DAILY
     Route: 048
     Dates: start: 20080813, end: 20080912

REACTIONS (1)
  - CARDIO-RESPIRATORY ARREST [None]
